FAERS Safety Report 13978186 (Version 6)
Quarter: 2018Q2

REPORT INFORMATION
  Report Type: Report from Study
  Country: CO (occurrence: CO)
  Receive Date: 20170915
  Receipt Date: 20180530
  Transmission Date: 20180711
  Serious: Yes (Hospitalization, Other)
  Sender: FDA-Public Use
  Company Number: CO-ACTELION-A-US2017-159503

PATIENT
  Age: 62 Year
  Sex: Male

DRUGS (13)
  1. ACETAMINOPHEN. [Concomitant]
     Active Substance: ACETAMINOPHEN
  2. ADEMPAS [Suspect]
     Active Substance: RIOCIGUAT
     Indication: PULMONARY ARTERIAL HYPERTENSION
     Dosage: 1 DF, 6ID
     Route: 048
     Dates: start: 20151010
  3. CARVEDILOL. [Concomitant]
     Active Substance: CARVEDILOL
  4. PHENOBARBITAL. [Concomitant]
     Active Substance: PHENOBARBITAL
     Indication: EPILEPSY
  5. ALBUMEN [Concomitant]
  6. OMEPRAZOLE. [Concomitant]
     Active Substance: OMEPRAZOLE
  7. OXYGEN. [Concomitant]
     Active Substance: OXYGEN
  8. ADEMPAS [Suspect]
     Active Substance: RIOCIGUAT
     Dosage: 1 DF, 8ID
     Route: 048
  9. KETAMINE [Concomitant]
     Active Substance: KETAMINE
  10. FUROSEMIDE. [Concomitant]
     Active Substance: FUROSEMIDE
     Indication: FLUID RETENTION
     Dosage: UNK
  11. SPIRONOLACTONE. [Concomitant]
     Active Substance: SPIRONOLACTONE
  12. VENTAVIS [Suspect]
     Active Substance: ILOPROST
     Indication: PULMONARY ARTERIAL HYPERTENSION
     Dosage: 6 DF, QD
     Route: 055
     Dates: start: 20170327
  13. WARFARIN [Concomitant]
     Active Substance: WARFARIN
     Dosage: UNK

REACTIONS (8)
  - Fluid retention [Recovering/Resolving]
  - Umbilical hernia [Recovering/Resolving]
  - Femur fracture [Recovering/Resolving]
  - Gastritis [Not Recovered/Not Resolved]
  - Hernia repair [Recovering/Resolving]
  - Intra-abdominal fluid collection [Not Recovered/Not Resolved]
  - Cough [Not Recovered/Not Resolved]
  - Fall [Recovering/Resolving]

NARRATIVE: CASE EVENT DATE: 201703
